FAERS Safety Report 8954605 (Version 1)
Quarter: 2012Q4

REPORT INFORMATION
  Report Type: 
  Country: US (occurrence: US)
  Receive Date: 20121207
  Receipt Date: 20121207
  Transmission Date: 20130627
  Serious: No
  Sender: FDA-Public Use
  Company Number: US-B.I. PHARMACEUTICALS,INC./RIDGEFIELD-2012-BI-02093BP

PATIENT
  Sex: Female

DRUGS (10)
  1. PRADAXA [Suspect]
     Indication: ATRIAL FIBRILLATION
     Dosage: 300 mg
     Route: 048
     Dates: start: 201012, end: 201210
  2. PRADAXA [Suspect]
     Dosage: 150 mg
     Route: 048
     Dates: start: 201210
  3. MULTAQ [Concomitant]
     Indication: HEART RATE IRREGULAR
     Dosage: 800 mg
     Route: 048
     Dates: start: 2010
  4. ASPIRIN [Concomitant]
     Indication: ATRIAL FIBRILLATION
     Dosage: 81 mg
     Route: 048
     Dates: start: 2010
  5. LASIX [Concomitant]
     Indication: SWELLING
     Dosage: 20 mg
     Route: 048
     Dates: start: 2010
  6. LASIX [Concomitant]
     Indication: CARDIAC FAILURE CONGESTIVE
  7. TYLENOL [Concomitant]
     Route: 048
  8. LOTREL [Concomitant]
     Indication: HYPERTENSION
     Route: 048
     Dates: end: 201201
  9. PROTONIX [Concomitant]
     Indication: GASTRIC DISORDER
     Dosage: 40 mg
     Route: 048
  10. POTASSIUM [Concomitant]
     Indication: BLOOD POTASSIUM DECREASED
     Dosage: 20 mEq
     Route: 048

REACTIONS (3)
  - Haemorrhoidal haemorrhage [Not Recovered/Not Resolved]
  - Contusion [Not Recovered/Not Resolved]
  - Cough [Not Recovered/Not Resolved]
